FAERS Safety Report 9788947 (Version 2)
Quarter: 2014Q1

REPORT INFORMATION
  Report Type: Report from Study
  Country: US (occurrence: US)
  Receive Date: 20131230
  Receipt Date: 20140217
  Transmission Date: 20141002
  Serious: Yes (Hospitalization)
  Sender: FDA-Public Use
  Company Number: US-TEVA-453674USA

PATIENT
  Age: 65 Year
  Sex: Male
  Weight: 105.21 kg

DRUGS (17)
  1. BENDAMUSTINE [Suspect]
     Indication: MANTLE CELL LYMPHOMA
     Route: 042
     Dates: start: 20131029, end: 20131030
  2. RITUXIMAB [Suspect]
     Route: 042
     Dates: start: 20131029
  3. IBRUTINIB/PLACEBO [Suspect]
     Indication: MANTLE CELL LYMPHOMA
     Route: 048
     Dates: start: 20131029
  4. METFORMIN [Concomitant]
     Indication: DIABETES MELLITUS
     Dosage: 2000 MILLIGRAM DAILY;
  5. GLIPIZIDE [Concomitant]
     Indication: DIABETES MELLITUS
     Dosage: 10 MILLIGRAM DAILY;
     Route: 048
  6. GLIPIZIDE [Concomitant]
     Dosage: 20 MILLIGRAM DAILY;
     Route: 048
  7. SITAGLIPTIN PHOSPATE [Concomitant]
     Indication: DIABETES MELLITUS
     Dosage: 100 MILLIGRAM DAILY;
     Route: 048
  8. LOSARTAN [Concomitant]
     Indication: HYPERTENSION
     Dosage: 50 MILLIGRAM DAILY;
     Route: 048
  9. TRIAMTERENE [Concomitant]
     Indication: HYPERTENSION
     Dosage: 10 MILLICURIES DAILY;
  10. PRAVASTATIN [Concomitant]
     Indication: HYPERLIPIDAEMIA
     Dosage: 10 MILLIGRAM DAILY;
     Route: 048
  11. PRAVASTATIN [Concomitant]
     Dosage: 20 MILLIGRAM DAILY;
     Route: 048
  12. CARVEDILOL [Concomitant]
     Indication: HYPERTENSION
     Dosage: 25 MILLIGRAM DAILY;
  13. CARVEDILOL [Concomitant]
     Dosage: 50 MILLIGRAM DAILY;
  14. WELCHOL [Concomitant]
     Indication: HYPERLIPIDAEMIA
     Dosage: 3.75 MILLIGRAM DAILY;
     Route: 048
  15. BENADRYL [Concomitant]
     Indication: PREMEDICATION
  16. ZOFRAN [Concomitant]
     Indication: PREMEDICATION
  17. DECADRON [Concomitant]
     Indication: PREMEDICATION

REACTIONS (1)
  - Atrial fibrillation [Recovered/Resolved]
